FAERS Safety Report 17265489 (Version 1)
Quarter: 2020Q1

REPORT INFORMATION
  Report Type: Report from Study
  Country: None (occurrence: KR)
  Receive Date: 20200114
  Receipt Date: 20200114
  Transmission Date: 20200409
  Serious: Yes (Hospitalization)
  Sender: FDA-Public Use
  Company Number: KR-EVOLUS, INC.-2020EV000009

PATIENT
  Age: 71 Year
  Sex: Male

DRUGS (18)
  1. NABOTA [Suspect]
     Active Substance: BOTULINUM TOXIN TYPE A
     Indication: MUSCLE SPASTICITY
     Route: 030
     Dates: start: 20190131, end: 20190131
  2. ASPIRIN PROTECT TAB 100MG [Concomitant]
     Indication: HYPERTENSION
     Route: 048
     Dates: start: 20190123
  3. DIABEX XR TAB 500MG [Concomitant]
     Indication: DIABETES MELLITUS
     Route: 048
     Dates: start: 20190213
  4. NEURACETAM TAB [Concomitant]
     Indication: COGNITIVE DISORDER
     Route: 048
  5. HARNAL D TAB 0.2MG [Concomitant]
     Indication: DYSURIA
     Route: 048
     Dates: start: 20190123
  6. AIRTAL TAB 100MG [Concomitant]
     Indication: MUSCULOSKELETAL PAIN
     Route: 048
     Dates: start: 20190123
  7. HERBEN RETARD TAB 90MG [Concomitant]
     Indication: HYPERTENSION
     Route: 048
     Dates: start: 20190129, end: 20190219
  8. DAEHWA MAGNESIUM OXIDE TAB [Concomitant]
     Indication: CONSTIPATION
     Route: 048
     Dates: start: 20190123
  9. AMARYL TAB 1MG [Concomitant]
     Indication: DIABETES MELLITUS
     Route: 048
     Dates: start: 20190123, end: 20190212
  10. JANUVIA TAB 100MG [Concomitant]
     Indication: DIABETES MELLITUS
     Route: 048
     Dates: start: 20190206
  11. GLUPA XR TAB [Concomitant]
     Indication: DIABETES MELLITUS
     Route: 048
     Dates: start: 20190123
  12. ATACAND TAB 8MG [Concomitant]
     Indication: HYPERTENSION
     Route: 048
     Dates: start: 20190123
  13. MYUNGIN DISGREN CAP 300MG [Concomitant]
     Indication: HYPERTENSION
     Route: 048
     Dates: start: 20190123
  14. PLETAAL SR CAP 200MG [Concomitant]
     Indication: HYPERTENSION
     Route: 048
     Dates: start: 20190219
  15. CRESTOR [Concomitant]
     Active Substance: ROSUVASTATIN CALCIUM
     Indication: HYPERCHOLESTEROLAEMIA
     Route: 048
     Dates: start: 20190123
  16. VALTREX TAB 500MG [Concomitant]
     Indication: FACIAL PARALYSIS
     Route: 048
     Dates: start: 20190215, end: 20190219
  17. ARONAMIN C PLUS TAB [Concomitant]
     Indication: HYPOVITAMINOSIS
     Route: 048
     Dates: start: 20190215, end: 20190219
  18. DIAMICRON MR TAB 60MG [Concomitant]
     Indication: DIABETES MELLITUS
     Route: 048
     Dates: start: 20190306

REACTIONS (1)
  - Facial paralysis [Recovered/Resolved]

NARRATIVE: CASE EVENT DATE: 20190214
